FAERS Safety Report 9726441 (Version 4)
Quarter: 2014Q2

REPORT INFORMATION
  Report Type: Report from Study
  Country: US (occurrence: US)
  Receive Date: 20131203
  Receipt Date: 20140401
  Transmission Date: 20141212
  Serious: Yes (Life-Threatening, Hospitalization, Disabling)
  Sender: FDA-Public Use
  Company Number: US-ACTELION-A-NJ2013-91803

PATIENT
  Age: 43 Year
  Sex: Female

DRUGS (4)
  1. VELETRI [Suspect]
     Indication: PULMONARY ARTERIAL HYPERTENSION
     Dosage: 22 NG/KG, PER MIN
     Route: 042
     Dates: start: 20130520
  2. SILDENAFIL [Concomitant]
  3. COUMADIN [Concomitant]
  4. LETAIRIS [Concomitant]
     Dosage: 5 MG, UNK

REACTIONS (9)
  - Hepatic cirrhosis [Recovered/Resolved]
  - Hepatic congestion [Recovering/Resolving]
  - Haemorrhage [Recovered/Resolved]
  - Transfusion [Recovered/Resolved]
  - Liver disorder [Recovering/Resolving]
  - Pulmonary hypertension [Recovering/Resolving]
  - Fluid retention [Recovering/Resolving]
  - Thrombocytopenia [Recovering/Resolving]
  - Contusion [Recovering/Resolving]
